FAERS Safety Report 10066792 (Version 2)
Quarter: 2014Q2

REPORT INFORMATION
  Report Type: Spontaneous
  Country: US (occurrence: US)
  Receive Date: 20140408
  Receipt Date: 20140408
  Transmission Date: 20141212
  Serious: Yes (Hospitalization, Other)
  Sender: FDA-Public Use
  Company Number: US-RB-062994-14

PATIENT
  Age: 60 Year
  Sex: Female

DRUGS (8)
  1. SUBOXONE FILM [Suspect]
     Indication: DRUG DEPENDENCE
     Dosage: SUBOXONE FILM; 16 MG IN THE MORNING AND HALF STRIP IN THE EVENING
     Route: 060
     Dates: start: 201304, end: 201403
  2. LOVASTATIN [Concomitant]
     Indication: BLOOD CHOLESTEROL INCREASED
     Route: 048
  3. LISINOPRIL [Concomitant]
     Indication: HYPERTENSION
     Route: 048
  4. NORVASC [Concomitant]
     Indication: HYPERTENSION
     Route: 048
  5. PLAVIX [Concomitant]
     Indication: CORONARY ARTERY DISEASE
     Route: 048
  6. PLAVIX [Concomitant]
     Indication: BLOOD CHOLESTEROL
     Route: 048
  7. NEURONTIN [Concomitant]
     Indication: NEURALGIA
     Route: 048
  8. ADVIL [Concomitant]
     Indication: PAIN
     Dosage: 2 TABLET EVERY 4 TO 6 HOURS IF NEEDED, COUPLE OF TIME A WEEK
     Route: 065

REACTIONS (5)
  - Wrong technique in drug usage process [Recovered/Resolved]
  - Nausea [Recovered/Resolved]
  - Therapeutic response changed [Recovered/Resolved]
  - Myocardial infarction [Recovered/Resolved]
  - Coronary artery occlusion [Unknown]
